FAERS Safety Report 17736388 (Version 1)
Quarter: 2020Q2

REPORT INFORMATION
  Report Type: Spontaneous
  Country: US (occurrence: US)
  Receive Date: 20200501
  Receipt Date: 20200501
  Transmission Date: 20200714
  Serious: No
  Sender: FDA-Public Use
  Company Number: US-RADIUS HEALTH INC.-2020US001016

PATIENT
  Age: 52 Year
  Sex: Female

DRUGS (1)
  1. TYMLOS [Suspect]
     Active Substance: ABALOPARATIDE
     Indication: OSTEOPOROSIS POSTMENOPAUSAL
     Dosage: 1 DOSE, DAILY
     Route: 058
     Dates: start: 202001

REACTIONS (3)
  - Constipation [Unknown]
  - Musculoskeletal discomfort [Unknown]
  - Product dose omission [Unknown]

NARRATIVE: CASE EVENT DATE: 20200123
